FAERS Safety Report 8963730 (Version 1)
Quarter: 2012Q4

REPORT INFORMATION
  Report Type: 
  Country: US (occurrence: US)
  Receive Date: 20121214
  Receipt Date: 20121214
  Transmission Date: 20130627
  Serious: No
  Sender: FDA-Public Use
  Company Number: US-009507513-1212USA003984

PATIENT
  Age: 56 Year
  Sex: Female

DRUGS (8)
  1. VYTORIN [Suspect]
     Indication: BLOOD CHOLESTEROL INCREASED
     Dosage: 10/40mg once daily in the evening
     Route: 048
  2. GLYBURIDE [Concomitant]
  3. LISINOPRIL [Concomitant]
  4. LASIX (FUROSEMIDE) [Concomitant]
  5. DEMEROL [Concomitant]
  6. JANUVIA [Concomitant]
     Route: 048
  7. VITAMINS (UNSPECIFIED) [Concomitant]
  8. INSULIN [Concomitant]

REACTIONS (1)
  - Abdominal pain upper [Not Recovered/Not Resolved]
